FAERS Safety Report 12669751 (Version 1)
Quarter: 2016Q3

REPORT INFORMATION
  Report Type: Spontaneous
  Country: CA (occurrence: CA)
  Receive Date: 20160819
  Receipt Date: 20160819
  Transmission Date: 20161109
  Serious: Yes (Death)
  Sender: FDA-Public Use
  Company Number: CA-ABBVIE-16P-028-1705675-00

PATIENT

DRUGS (1)
  1. EPIVAL [Suspect]
     Active Substance: DIVALPROEX SODIUM
     Indication: AFFECTIVE DISORDER
     Route: 065

REACTIONS (5)
  - Weight decreased [Fatal]
  - Somnolence [Fatal]
  - Death [Fatal]
  - Dehydration [Fatal]
  - Urinary tract infection [Fatal]
